FAERS Safety Report 5561307-8 (Version None)
Quarter: 2007Q4

REPORT INFORMATION
  Report Type: 
  Country: None (occurrence: None)
  Receive Date: 20071215
  Receipt Date: 20071023
  Transmission Date: 20080405
  Serious: No
  Sender: FDA-Public Use
  Company Number: US-AMGEN-KDL249373

PATIENT
  Sex: Male

DRUGS (2)
  1. ENBREL [Suspect]
     Indication: PSORIATIC ARTHROPATHY
     Route: 058
     Dates: start: 20030125
  2. ENBREL [Suspect]
     Indication: PSORIASIS

REACTIONS (3)
  - HYPERSENSITIVITY [None]
  - NASAL SEPTUM DEVIATION [None]
  - SINUSITIS [None]
